FAERS Safety Report 8066817-X (Version None)
Quarter: 2012Q1

REPORT INFORMATION
  Report Type: 
  Country: None (occurrence: None)
  Receive Date: 20120124
  Receipt Date: 20120111
  Transmission Date: 20120608
  Serious: Yes (Other)
  Sender: FDA-Public Use
  Company Number: PHHY2012US003041

PATIENT
  Age: 14 Year
  Sex: Male

DRUGS (5)
  1. METHYLPREDNISOLONE [Concomitant]
     Dosage: UNK UKN, UNK
  2. CYCLOPHOSPHAMIDE [Concomitant]
     Dosage: 50 MG/KG, QD
     Route: 042
  3. IMMUNE GLOBULIN (HUMAN) [Concomitant]
     Dosage: 15 MG/KG, BID
     Route: 042
  4. CYCLOSPORINE [Suspect]
     Indication: PROPHYLAXIS AGAINST GRAFT VERSUS HOST DISEASE
     Dosage: 5 MG/KG/DAY
  5. BUSULFAN [Concomitant]
     Dosage: 4 MG/KG, DAILY
     Route: 048

REACTIONS (18)
  - EXCORIATION [None]
  - PNEUMONIA KLEBSIELLA [None]
  - ENCEPHALITIS [None]
  - DEPRESSION [None]
  - HALLUCINATION, VISUAL [None]
  - BK VIRUS INFECTION [None]
  - TREMOR [None]
  - VENOOCCLUSIVE DISEASE [None]
  - PRURITUS GENERALISED [None]
  - HYPOTHERMIA [None]
  - VIRAL HAEMORRHAGIC CYSTITIS [None]
  - SCRATCH [None]
  - HUMAN HERPESVIRUS 6 INFECTION [None]
  - INSOMNIA [None]
  - IRRITABILITY [None]
  - ANXIETY [None]
  - RENAL FAILURE [None]
  - BLOOD BILIRUBIN INCREASED [None]
